FAERS Safety Report 17949426 (Version 5)
Quarter: 2021Q1

REPORT INFORMATION
  Report Type: Report from Study
  Country: CA (occurrence: CA)
  Receive Date: 20200626
  Receipt Date: 20210305
  Transmission Date: 20210419
  Serious: Yes (Hospitalization, Other)
  Sender: FDA-Public Use
  Company Number: CA-BRISTOL-MYERS SQUIBB COMPANY-BMS-2020-049024

PATIENT
  Age: 85 Year
  Sex: Female

DRUGS (1)
  1. ABATACEPT [Suspect]
     Active Substance: ABATACEPT
     Indication: RHEUMATOID ARTHRITIS
     Dosage: 125 MILLIGRAM, QWK
     Route: 058
     Dates: start: 20140307

REACTIONS (10)
  - Fall [Unknown]
  - Pain in extremity [Unknown]
  - Endocarditis [None]
  - Pneumonia aspiration [Unknown]
  - Loss of consciousness [Unknown]
  - Hypotension [Unknown]
  - Cerebrovascular accident [Unknown]
  - Scapula fracture [Unknown]
  - Infection [Unknown]
  - Herpes ophthalmic [Unknown]

NARRATIVE: CASE EVENT DATE: 201904
